FAERS Safety Report 26188769 (Version 1)
Quarter: 2025Q4

REPORT INFORMATION
  Report Type: Report from Study
  Country: EU (occurrence: EU)
  Receive Date: 20251222
  Receipt Date: 20251222
  Transmission Date: 20260118
  Serious: Yes (Death)
  Sender: ABBVIE
  Company Number: EU-ABBVIE-6601907

PATIENT
  Age: 78 Year
  Sex: Male

DRUGS (6)
  1. CARBIDOPA\LEVODOPA [Suspect]
     Active Substance: CARBIDOPA\LEVODOPA
     Indication: Parkinson^s disease
     Route: 050
     Dates: start: 20220225
  2. CARBIDOPA\LEVODOPA [Suspect]
     Active Substance: CARBIDOPA\LEVODOPA
  3. APIXABAN [Concomitant]
     Active Substance: APIXABAN
     Indication: Product used for unknown indication
     Dosage: 2 X PER DAY 1 PIECE HYDROXOCOBALAMIN INJ
     Route: 048
  4. APOMORPHINE [Concomitant]
     Active Substance: APOMORPHINE
     Indication: Parkinson^s disease
     Dosage: 5 MG/ML IN 20 ML
  5. BENSERAZIDE\LEVODOPA [Concomitant]
     Active Substance: BENSERAZIDE\LEVODOPA
     Indication: Parkinson^s disease
     Dosage: CAPSULE RET 100/25MG (ORAL), 1 X PER DAY 2 PIECES
     Route: 048
  6. ROTIGOTINE [Concomitant]
     Active Substance: ROTIGOTINE
     Indication: Product used for unknown indication
     Dosage: ROTIGOTINE PATCH 8MG/24H (TRANSDERMAL), 1 X PER DAY 1 PIECE
     Route: 062

REACTIONS (1)
  - Respiratory tract infection [Fatal]
